FAERS Safety Report 10994254 (Version 1)
Quarter: 2015Q2

REPORT INFORMATION
  Report Type: Spontaneous
  Country: US (occurrence: None)
  Receive Date: 20150403
  Receipt Date: 20150403
  Transmission Date: 20150821
  Serious: Yes (Death, Hospitalization)
  Sender: FDA-Public Use
  Company Number: CPI6860

PATIENT
  Age: 18 Year
  Sex: Female

DRUGS (5)
  1. N-ACETYLCYSTEINE [Suspect]
     Active Substance: ACETYLCYSTEINE
     Indication: TRANSAMINASES INCREASED
  2. ANTIBIOTICS [Suspect]
     Active Substance: UNSPECIFIED INGREDIENT
     Indication: SEPSIS
  3. RITUXIMAB [Concomitant]
     Active Substance: RITUXIMAB
  4. ETOPOSIDE. [Concomitant]
     Active Substance: ETOPOSIDE
  5. DEXAMETHASONE. [Concomitant]
     Active Substance: DEXAMETHASONE

REACTIONS (2)
  - Respiratory failure [None]
  - Aspergillus infection [None]

NARRATIVE: CASE EVENT DATE: 2014
